FAERS Safety Report 5744687-X (Version None)
Quarter: 2008Q2

REPORT INFORMATION
  Report Type: 
  Country: None (occurrence: None)
  Receive Date: 20080516
  Receipt Date: 20080507
  Transmission Date: 20081010
  Serious: Yes (Death)
  Sender: FDA-Public Use
  Company Number: 027719

PATIENT
  Sex: Female

DRUGS (2)
  1. MEDROXYPROGESTERONE [Suspect]
     Dosage: ORAL
     Route: 048
  2. PREMPRO [Suspect]
     Dosage: ORAL
     Route: 048

REACTIONS (1)
  - DEATH [None]
